FAERS Safety Report 6101159-0 (Version None)
Quarter: 2009Q1

REPORT INFORMATION
  Report Type: 
  Country: None (occurrence: None)
  Receive Date: 20090304
  Receipt Date: 20090224
  Transmission Date: 20090719
  Serious: Yes (Death, Other)
  Sender: FDA-Public Use
  Company Number: US-ELI_LILLY_AND_COMPANY-US200902003759

PATIENT
  Sex: Female

DRUGS (2)
  1. PROZAC [Suspect]
     Indication: DEPRESSION
     Dates: start: 20080101, end: 20080701
  2. REBIF [Concomitant]
     Indication: MULTIPLE SCLEROSIS
     Dosage: 4 UG, 3/W
     Route: 058
     Dates: start: 20080118, end: 20080701

REACTIONS (7)
  - BIPOLAR DISORDER [None]
  - CEREBROVASCULAR ACCIDENT [None]
  - COMPLETED SUICIDE [None]
  - OVERDOSE [None]
  - SKIN DISCOLOURATION [None]
  - SUICIDAL IDEATION [None]
  - THERAPEUTIC AGENT TOXICITY [None]
